FAERS Safety Report 8007995-8 (Version None)
Quarter: 2011Q4

REPORT INFORMATION
  Report Type: 
  Country: None (occurrence: None)
  Receive Date: 20111227
  Receipt Date: 20111213
  Transmission Date: 20120403
  Serious: Yes (Other)
  Sender: FDA-Public Use
  Company Number: PHHY2011US57308

PATIENT
  Sex: Female

DRUGS (11)
  1. LEVOXYL [Concomitant]
     Dosage: 112 MG, QD
     Route: 048
  2. CYCLOBENZAPRINE [Concomitant]
     Dosage: 20 MG, QHS
     Route: 048
  3. FEXOFENADINE [Concomitant]
     Dosage: 180 MG, QD
     Route: 048
  4. MULTI-VITAMINS [Concomitant]
     Route: 048
  5. METOPROLOL SUCCINATE [Concomitant]
     Dosage: 50 MG, QD
     Route: 048
  6. GLEEVEC [Suspect]
     Indication: MALIGNANT SOFT TISSUE NEOPLASM
     Dosage: 400 MG, DAILY
     Route: 048
     Dates: start: 20110418, end: 20111007
  7. NABUMETONE [Concomitant]
     Dosage: 500 MG, QD
     Route: 048
  8. VITAMIN D [Concomitant]
     Dosage: 2000 U, UNK
  9. CALCIUM ACETATE [Concomitant]
     Dosage: 600 MG, QD
     Route: 048
  10. GLEEVEC [Suspect]
     Dosage: 400 MG DAILY
     Dates: start: 20110512
  11. OMEPRAZOLE [Concomitant]
     Dosage: 40 MG, QD
     Route: 048

REACTIONS (6)
  - HEPATIC STEATOSIS [None]
  - ALANINE AMINOTRANSFERASE INCREASED [None]
  - LIVER FUNCTION TEST ABNORMAL [None]
  - ASPARTATE AMINOTRANSFERASE INCREASED [None]
  - GALLBLADDER DISORDER [None]
  - RASH PRURITIC [None]
